FAERS Safety Report 5901791-0 (Version None)
Quarter: 2008Q3

REPORT INFORMATION
  Report Type: 
  Country: None (occurrence: None)
  Receive Date: 20080925
  Receipt Date: 20071031
  Transmission Date: 20090109
  Serious: Yes (Other)
  Sender: FDA-Public Use
  Company Number: 6045682

PATIENT
  Age: 82 Year
  Sex: Male

DRUGS (5)
  1. BICOR (TABLET) (BISOPROLOL FUMARATE) [Suspect]
     Indication: ATRIAL FLUTTER
     Dosage: SEE IMAGE
     Route: 046
     Dates: start: 20060101, end: 20070401
  2. WARFARIN SODIUM [Concomitant]
  3. ALOACTONE (SPIRONOLACTONE) [Concomitant]
  4. RAMIPRIL [Concomitant]
  5. UREMIDE (FUROSEMIDE) [Concomitant]

REACTIONS (8)
  - DECREASED ACTIVITY [None]
  - DEPRESSION [None]
  - DYSPNOEA EXERTIONAL [None]
  - FATIGUE [None]
  - IRRITABILITY [None]
  - MEMORY IMPAIRMENT [None]
  - MENTAL IMPAIRMENT [None]
  - WEIGHT INCREASED [None]
